FAERS Safety Report 9255176 (Version 2)
Quarter: 2013Q2

REPORT INFORMATION
  Report Type: Spontaneous
  Country: US (occurrence: US)
  Receive Date: 20130425
  Receipt Date: 20130507
  Transmission Date: 20140414
  Serious: Yes (Other)
  Sender: FDA-Public Use
  Company Number: US-JNJFOC-20130310422

PATIENT
  Sex: Female

DRUGS (12)
  1. TOPAMAX [Suspect]
     Indication: EPILEPSY
     Route: 048
  2. KEPPRA [Suspect]
     Indication: EPILEPSY
     Route: 048
  3. AMOXICILLIN [Suspect]
     Indication: INFECTION
     Route: 048
  4. NITROFURANTOIN [Suspect]
     Indication: URINARY TRACT INFECTION
     Route: 048
  5. HYDROCODONE [Suspect]
     Indication: PAIN
     Dosage: 5MG/500MG 1-2 TABLETS WHEN NEEDED
     Route: 048
  6. DOCQLACE [Suspect]
     Indication: CONSTIPATION
     Route: 065
  7. CLONAZEPAM [Suspect]
     Indication: ANXIETY
     Route: 048
  8. LOPERAMIDE [Suspect]
     Indication: DIARRHOEA
     Route: 048
  9. ACETAMINOPHEN/CODEINE [Suspect]
     Indication: PAIN
     Dosage: 1-2 TABLETS EVERY 4 TO 6 HOURS WHEN NEEDED
     Route: 065
  10. FOLIC ACID [Concomitant]
     Indication: PREGNANCY
     Route: 048
  11. MEPHYTON [Concomitant]
     Indication: VITAMIN SUPPLEMENTATION
     Route: 048
  12. PRENATAL VITAMINS [Concomitant]
     Indication: PREGNANCY
     Route: 048

REACTIONS (2)
  - Emotional disorder [Unknown]
  - Exposure during pregnancy [Recovered/Resolved]
